FAERS Safety Report 11894717 (Version 1)
Quarter: 2016Q1

REPORT INFORMATION
  Report Type: Spontaneous
  Country: IT (occurrence: IT)
  Receive Date: 20160107
  Receipt Date: 20160107
  Transmission Date: 20160526
  Serious: Yes (Hospitalization)
  Sender: FDA-Public Use
  Company Number: IT-SUN PHARMACEUTICAL INDUSTRIES LTD-2015RR-109289

PATIENT

DRUGS (1)
  1. AMOXICILLINA E ACIDO CLAVULANICO RANBAXY 875MG+125MG COMPRESSE RIVESTI [Suspect]
     Active Substance: AMOXICILLIN\CLAVULANIC ACID
     Indication: PRODUCT USED FOR UNKNOWN INDICATION
     Dosage: 1 G TOTAL
     Route: 048
     Dates: start: 20151023, end: 20151023

REACTIONS (1)
  - Anaphylactic reaction [Recovered/Resolved]

NARRATIVE: CASE EVENT DATE: 20151023
